FAERS Safety Report 20356153 (Version 1)
Quarter: 2022Q1

REPORT INFORMATION
  Report Type: Spontaneous
  Country: US (occurrence: None)
  Receive Date: 20220119
  Receipt Date: 20220119
  Transmission Date: 20220423
  Serious: Yes (unspecified)
  Sender: FDA-Public Use
  Company Number: None

PATIENT
  Age: 56 Year
  Sex: Female

DRUGS (7)
  1. INGREZZA [Suspect]
     Active Substance: VALBENAZINE
     Indication: Movement disorder
     Dosage: FREQUENCY : DAILY;?
     Route: 048
  2. Albuterol soln [Concomitant]
  3. CLONAZEPAM [Concomitant]
     Active Substance: CLONAZEPAM
  4. LEVETIRACETAM [Concomitant]
     Active Substance: LEVETIRACETAM
  5. PHENOBARBITAL [Concomitant]
     Active Substance: PHENOBARBITAL
  6. Valproric acid [Concomitant]
  7. VIMPAT [Concomitant]
     Active Substance: LACOSAMIDE

REACTIONS (1)
  - Therapy non-responder [None]

NARRATIVE: CASE EVENT DATE: 20220119
